FAERS Safety Report 19757453 (Version 1)
Quarter: 2021Q3

REPORT INFORMATION
  Report Type: Spontaneous
  Country: GB (occurrence: GB)
  Receive Date: 20210828
  Receipt Date: 20210828
  Transmission Date: 20211014
  Serious: Yes (Other)
  Sender: FDA-Public Use
  Company Number: GB-ACCORD-236127

PATIENT
  Age: 4 Year
  Sex: Female

DRUGS (6)
  1. BUSULFAN. [Concomitant]
     Active Substance: BUSULFAN
     Indication: METASTASIS
  2. CISPLATIN. [Suspect]
     Active Substance: CISPLATIN
     Indication: METASTASIS
  3. CARBOPLATIN. [Suspect]
     Active Substance: CARBOPLATIN
     Indication: METASTASIS
  4. MELPHALAN. [Concomitant]
     Active Substance: MELPHALAN
     Indication: METASTASIS
  5. ETOPOSIDE. [Suspect]
     Active Substance: ETOPOSIDE
     Indication: METASTASIS
  6. ISOTRETINOIN. [Concomitant]
     Active Substance: ISOTRETINOIN
     Indication: METASTASIS

REACTIONS (2)
  - Acute myeloid leukaemia [Recovering/Resolving]
  - Clonal haematopoiesis [Recovering/Resolving]
